FAERS Safety Report 14346884 (Version 2)
Quarter: 2018Q1

REPORT INFORMATION
  Report Type: Spontaneous
  Country: US (occurrence: US)
  Receive Date: 20180103
  Receipt Date: 20180103
  Transmission Date: 20180509
  Serious: Yes (Other)
  Sender: FDA-Public Use
  Company Number: US-CELGENEUS-USA-20171208088

PATIENT
  Sex: Male
  Weight: 66.65 kg

DRUGS (1)
  1. REVLIMID [Suspect]
     Active Substance: LENALIDOMIDE
     Indication: PLASMA CELL MYELOMA
     Dosage: 10 MILLIGRAM (DAYS 1-7)
     Route: 048
     Dates: start: 20171121

REACTIONS (4)
  - Hallucination [Unknown]
  - Disorientation [Unknown]
  - Hypersensitivity [Unknown]
  - Mania [Unknown]
